FAERS Safety Report 9263851 (Version 1)
Quarter: 2013Q2

REPORT INFORMATION
  Report Type: Spontaneous
  Country: JP (occurrence: JP)
  Receive Date: 20130430
  Receipt Date: 20130430
  Transmission Date: 20140414
  Serious: Yes (Hospitalization)
  Sender: FDA-Public Use
  Company Number: JP-ASTRAZENECA-2013SE28997

PATIENT
  Age: 72 Year
  Sex: Female

DRUGS (2)
  1. NEXIUM [Suspect]
     Indication: GASTRIC ULCER HAEMORRHAGE
     Route: 048
     Dates: start: 20130323, end: 20130327
  2. LANSAP [Suspect]
     Indication: HELICOBACTER INFECTION
     Route: 065
     Dates: start: 20130316, end: 20130323

REACTIONS (1)
  - Rash generalised [Recovered/Resolved]
